FAERS Safety Report 23544275 (Version 1)
Quarter: 2024Q1

REPORT INFORMATION
  Report Type: Spontaneous
  Country: US (occurrence: None)
  Receive Date: 20240216
  Receipt Date: 20240216
  Transmission Date: 20240410
  Serious: Yes (Hospitalization, Disabling, Other)
  Sender: FDA-Public Use
  Company Number: None

PATIENT
  Age: 73 Year
  Sex: Female
  Weight: 105.69 kg

DRUGS (10)
  1. NAPROXEN [Suspect]
     Active Substance: NAPROXEN
     Indication: Pain
     Dosage: AS NEEDED BY MOUTH
     Dates: start: 20230816
  2. LATANOPROST  SOLIN [Concomitant]
  3. SPIRONOLACTONE [Concomitant]
     Active Substance: SPIRONOLACTONE
  4. HYDROCHLOROTHIAZIDE [Concomitant]
     Active Substance: HYDROCHLOROTHIAZIDE
  5. ALLOPURINOL [Concomitant]
     Active Substance: ALLOPURINOL
  6. AMLODIPINE- BESYLATE [Concomitant]
  7. DOXAZOSIN-MESYLATE [Concomitant]
  8. ASPIRIN [Concomitant]
     Active Substance: ASPIRIN
  9. FISH OIL [Concomitant]
     Active Substance: FISH OIL
  10. CALCIUM [Concomitant]

REACTIONS (4)
  - Gastric ulcer [None]
  - Gastritis [None]
  - Abdominal pain upper [None]
  - Gastric perforation [None]

NARRATIVE: CASE EVENT DATE: 20230816
